FAERS Safety Report 8933793 (Version 1)
Quarter: 2012Q4

REPORT INFORMATION
  Report Type: 
  Country: DE (occurrence: DE)
  Receive Date: 20121129
  Receipt Date: 20121129
  Transmission Date: 20130627
  Serious: Yes (Death, Other)
  Sender: FDA-Public Use
  Company Number: DE-TEVA-370965GER

PATIENT
  Sex: Female

DRUGS (1)
  1. ZOPICLONE [Suspect]
     Route: 048
     Dates: start: 20120427, end: 20120904

REACTIONS (5)
  - Death [Fatal]
  - Delirium [Unknown]
  - Dehydration [Unknown]
  - Fluid intake reduced [Unknown]
  - Dyspepsia [Unknown]
